FAERS Safety Report 22022362 (Version 1)
Quarter: 2023Q1

REPORT INFORMATION
  Report Type: Spontaneous
  Country: GR (occurrence: GR)
  Receive Date: 20230222
  Receipt Date: 20230222
  Transmission Date: 20230418
  Serious: Yes (Other)
  Sender: FDA-Public Use
  Company Number: GR-PFIZER INC-202300071521

PATIENT
  Sex: Male

DRUGS (2)
  1. AVIBACTAM SODIUM\CEFTAZIDIME [Suspect]
     Active Substance: AVIBACTAM SODIUM\CEFTAZIDIME
     Indication: Bacterial infection
     Dosage: UNK
  2. COLISTIN [Concomitant]
     Active Substance: COLISTIN
     Indication: Bacterial infection
     Dosage: UNK

REACTIONS (2)
  - Aspergillus infection [Recovered/Resolved]
  - Hepatic enzyme increased [Unknown]
